FAERS Safety Report 20169822 (Version 1)
Quarter: 2021Q4

REPORT INFORMATION
  Report Type: Spontaneous
  Country: US (occurrence: None)
  Receive Date: 20211209
  Receipt Date: 20211209
  Transmission Date: 20220304
  Serious: Yes (Hospitalization)
  Sender: FDA-Public Use
  Company Number: None

PATIENT
  Age: 5 Year
  Sex: Female

DRUGS (1)
  1. TOBRAMYCIN [Suspect]
     Active Substance: TOBRAMYCIN
     Indication: Cystic fibrosis
     Dosage: OTHER QUANTITY : 300/5 MG/ML;?FREQUENCY : ?
     Route: 048
     Dates: start: 20211025

REACTIONS (1)
  - Disease complication [None]

NARRATIVE: CASE EVENT DATE: 20211110
